FAERS Safety Report 5297519-0 (Version None)
Quarter: 2007Q2

REPORT INFORMATION
  Report Type: 
  Country: None (occurrence: None)
  Receive Date: 20070416
  Receipt Date: 20070409
  Transmission Date: 20071010
  Serious: Yes (Hospitalization)
  Sender: FDA-Public Use
  Company Number: US-GENENTECH-239661

PATIENT
  Age: 61 Year
  Sex: Female
  Weight: 59.41 kg

DRUGS (6)
  1. BEVACIZUMAB [Suspect]
     Indication: BREAST CANCER
     Dosage: 620 MG, Q2W
     Route: 042
     Dates: start: 20070116
  2. PACLITAXEL [Suspect]
     Indication: BREAST CANCER
     Dosage: 400 MG, Q2W
     Route: 042
     Dates: start: 20070315
  3. ATIVAN [Concomitant]
     Indication: DRUG USE FOR UNKNOWN INDICATION
     Dosage: 1 MG, PRN
  4. COMPAZINE [Concomitant]
     Indication: DRUG USE FOR UNKNOWN INDICATION
     Dosage: 10 MG, PRN
  5. NEULASTA [Concomitant]
     Indication: DRUG USE FOR UNKNOWN INDICATION
     Dosage: 6 MG, UNK
  6. ARANESP [Concomitant]
     Indication: DRUG USE FOR UNKNOWN INDICATION

REACTIONS (2)
  - CHEST PAIN [None]
  - DYSPNOEA [None]
